FAERS Safety Report 9361079 (Version 1)
Quarter: 2013Q2

REPORT INFORMATION
  Report Type: Spontaneous
  Country: US (occurrence: US)
  Receive Date: 20130621
  Receipt Date: 20130621
  Transmission Date: 20140414
  Serious: Yes (Hospitalization)
  Sender: FDA-Public Use
  Company Number: US-BAYER-2013-076332

PATIENT
  Age: 48 Year
  Sex: Female

DRUGS (3)
  1. YASMIN [Suspect]
  2. SERTRALINE HYDROCHLORIDE [Concomitant]
     Dosage: 50 MG, UNK
     Route: 048
     Dates: start: 20061202
  3. HYDROCODONE [Concomitant]
     Dosage: UNK
     Route: 048
     Dates: start: 20070213

REACTIONS (2)
  - Deep vein thrombosis [None]
  - Pulmonary embolism [None]
